FAERS Safety Report 4463322-4 (Version None)
Quarter: 2004Q3

REPORT INFORMATION
  Report Type: 
  Country: None (occurrence: None)
  Receive Date: 20040930
  Receipt Date: 20040922
  Transmission Date: 20050211
  Serious: Yes (Hospitalization)
  Sender: FDA-Public Use
  Company Number: US-ROCHE-381402

PATIENT
  Age: 44 Year
  Sex: Male
  Weight: 88.5 kg

DRUGS (6)
  1. PEGASYS [Suspect]
     Route: 058
     Dates: start: 20030115, end: 20030715
  2. PEGASYS [Suspect]
     Route: 058
     Dates: start: 20040923
  3. COPEGUS [Suspect]
     Dosage: GIVEN AT 3 AM AND 2 PM.
     Route: 048
     Dates: start: 20030115, end: 20030715
  4. COPEGUS [Suspect]
     Dosage: GIVEN AT 3 AM AND 2 PM.
     Route: 048
     Dates: start: 20040923
  5. VERAPAMIL [Concomitant]
     Indication: HYPERTENSION
     Route: 048
  6. ATENOLOL [Concomitant]
     Indication: HYPERTENSION
     Route: 048

REACTIONS (5)
  - COMA [None]
  - CONFUSIONAL STATE [None]
  - DEPRESSION [None]
  - HALLUCINATION [None]
  - SMALL INTESTINAL OBSTRUCTION [None]
